FAERS Safety Report 8295168-3 (Version None)
Quarter: 2012Q2

REPORT INFORMATION
  Report Type: 
  Country: None (occurrence: None)
  Receive Date: 20120418
  Receipt Date: 20120410
  Transmission Date: 20120825
  Serious: Yes (Hospitalization)
  Sender: FDA-Public Use
  Company Number: FR-SP-2012-03437

PATIENT
  Sex: Male

DRUGS (1)
  1. IMMUCYST [Suspect]
     Indication: BLADDER CANCER
     Route: 043
     Dates: start: 20111202, end: 20120106

REACTIONS (8)
  - ABDOMINAL PAIN [None]
  - INFECTION [None]
  - HYPERTHERMIA [None]
  - UROSEPSIS [None]
  - RENAL FAILURE [None]
  - HYPOTENSION [None]
  - BACK PAIN [None]
  - MALAISE [None]
